FAERS Safety Report 4381606-5 (Version None)
Quarter: 2004Q2

REPORT INFORMATION
  Report Type: 
  Country: None (occurrence: None)
  Receive Date: 20040621
  Receipt Date: 20040402
  Transmission Date: 20050107
  Serious: Yes (Hospitalization)
  Sender: FDA-Public Use
  Company Number: JP-ROCHE-363494

PATIENT
  Age: 65 Year
  Sex: Male

DRUGS (12)
  1. PERDIPINE [Suspect]
     Indication: CEREBRAL HAEMORRHAGE
     Route: 041
     Dates: start: 20040310, end: 20040326
  2. PERDIPINE [Suspect]
     Route: 041
     Dates: start: 20040309, end: 20040309
  3. FAMOTIDINE [Concomitant]
     Indication: CEREBRAL HAEMORRHAGE
     Route: 041
     Dates: start: 20040309
  4. CARBAZOCHROME [Concomitant]
     Indication: CEREBRAL HAEMORRHAGE
     Route: 041
     Dates: start: 20040309
  5. TRANEXAMIC ACID [Concomitant]
     Indication: CEREBRAL HAEMORRHAGE
     Route: 041
     Dates: start: 20040309
  6. GLYCEOL [Concomitant]
     Indication: CEREBRAL HAEMORRHAGE
     Route: 041
     Dates: start: 20040309
  7. PHENYTOIN [Concomitant]
     Indication: CEREBRAL HAEMORRHAGE
     Route: 041
     Dates: start: 20040309
  8. LOSARTAN POTASSIUM [Concomitant]
     Route: 048
     Dates: start: 20040310, end: 20040315
  9. AMLODIPINE BESYLATE [Concomitant]
     Dosage: DOSE WAS INTERRUPTED BETWEEN 21 APR AND 31 MAR 2004.
     Route: 048
     Dates: start: 20040313
  10. ZONISAMIDE [Concomitant]
     Indication: CEREBRAL HAEMORRHAGE
     Dosage: THERAPY WAS INTERRUPTED BETWEEN 21 MAR AND 31 MAR 2004.
     Route: 048
     Dates: start: 20040313
  11. ETIZOLAM [Concomitant]
     Indication: CEREBRAL HAEMORRHAGE
     Dosage: THERAPY WAS INTERRUPTED BETWEEN 21 MAR AND 31 MAR 2004.
     Route: 048
     Dates: start: 20040314
  12. VALSARTAN [Concomitant]
     Indication: CEREBRAL HAEMORRHAGE
     Dosage: THERAPY WAS INTERRUPTED BETWEEN 21 MAR AND 31 MAR 2004.
     Route: 048
     Dates: start: 20040317

REACTIONS (2)
  - HEPATIC FUNCTION ABNORMAL [None]
  - ILEUS PARALYTIC [None]
